FAERS Safety Report 7096069 (Version 2)
Quarter: 2020Q4

REPORT INFORMATION
  Report Type: Spontaneous
  Country: MY (occurrence: MY)
  Receive Date: 20090825
  Receipt Date: 20201229
  Transmission Date: 20210114
  Serious: Yes (Death, Hospitalization, Other)
  Sender: FDA-Public Use
  Company Number: PHHY2009MY35288

PATIENT
  Age: 45 Year
  Sex: Male

DRUGS (5)
  1. CLOFAZIMINE [Suspect]
     Active Substance: CLOFAZIMINE
     Indication: TYPE 2 LEPRA REACTION
     Dosage: 50 MG, UNK
     Route: 065
  2. RIFAMPICIN [Suspect]
     Active Substance: RIFAMPIN
     Indication: TYPE 2 LEPRA REACTION
     Dosage: 600 MG, UNK
     Route: 065
  3. PREDNISOLONE. [Concomitant]
     Active Substance: PREDNISOLONE
     Indication: PRODUCT USED FOR UNKNOWN INDICATION
     Dosage: 20 MG, TID
     Route: 065
  4. CLOFAZIMINE [Suspect]
     Active Substance: CLOFAZIMINE
     Indication: LEPROMATOUS LEPROSY
     Dosage: 100 MG, UNK
     Route: 065
  5. DAPSONE. [Suspect]
     Active Substance: DAPSONE
     Indication: TYPE 2 LEPRA REACTION
     Dosage: 100 MG, UNK
     Route: 065

REACTIONS (15)
  - Sepsis [Fatal]
  - Gangrene [Fatal]
  - Skin plaque [Fatal]
  - Liver palpable [Unknown]
  - Papule [Fatal]
  - Skin ulcer [Fatal]
  - Scrotal gangrene [Fatal]
  - Hypochromic anaemia [Not Recovered/Not Resolved]
  - Skin lesion [Fatal]
  - Haemorrhagic infarction [Fatal]
  - Purulent discharge [Fatal]
  - Necrosis [Fatal]
  - Platelet count decreased [Unknown]
  - Red blood cell sedimentation rate increased [Unknown]
  - Hypoalbuminaemia [Not Recovered/Not Resolved]
